FAERS Safety Report 11835375 (Version 1)
Quarter: 2015Q4

REPORT INFORMATION
  Report Type: Spontaneous
  Country: IT (occurrence: IT)
  Receive Date: 20151215
  Receipt Date: 20151215
  Transmission Date: 20160305
  Serious: Yes (Hospitalization, Other)
  Sender: FDA-Public Use
  Company Number: IT-PAR PHARMACEUTICAL COMPANIES-2015SCPR014609

PATIENT

DRUGS (8)
  1. FLUPHENAZINE DECANOATE. [Suspect]
     Active Substance: FLUPHENAZINE DECANOATE
     Indication: BIPOLAR I DISORDER
     Dosage: 2.5 MG, MONTHLY
     Route: 030
     Dates: start: 2005
  2. PALIPERIDONE [Suspect]
     Active Substance: PALIPERIDONE
     Indication: BIPOLAR I DISORDER
     Dosage: 6 MG, OD
     Route: 065
     Dates: start: 2013, end: 2013
  3. LORAZEPAM. [Suspect]
     Active Substance: LORAZEPAM
     Indication: BIPOLAR I DISORDER
     Dosage: 2.5 MG, OD
     Route: 065
     Dates: start: 2005, end: 2013
  4. CLONAZEPAM. [Suspect]
     Active Substance: CLONAZEPAM
     Indication: BIPOLAR I DISORDER
     Dosage: 1 MG, OD
     Route: 065
     Dates: start: 2005, end: 2013
  5. QUETIAPINE [Suspect]
     Active Substance: QUETIAPINE
     Indication: BIPOLAR I DISORDER
     Dosage: 300 MG, TID
     Route: 065
     Dates: start: 2005, end: 2013
  6. FLUPHENAZINE DECANOATE. [Suspect]
     Active Substance: FLUPHENAZINE DECANOATE
     Dosage: 2.5 MG, ONCE EVERY 21 DAYS
     Route: 030
     Dates: end: 2013
  7. DANTRIUM [Suspect]
     Active Substance: DANTROLENE SODIUM
     Indication: NEUROLEPTIC MALIGNANT SYNDROME
     Dosage: 1 MG/KG, UNKNOWN
     Route: 042
     Dates: start: 2013
  8. HALOPERIDOL. [Suspect]
     Active Substance: HALOPERIDOL
     Indication: BIPOLAR I DISORDER
     Dosage: 4 MG, TID
     Route: 065
     Dates: start: 2005, end: 2013

REACTIONS (4)
  - Bipolar I disorder [Recovering/Resolving]
  - Condition aggravated [Recovering/Resolving]
  - Neuroleptic malignant syndrome [Recovering/Resolving]
  - Drug ineffective for unapproved indication [Unknown]

NARRATIVE: CASE EVENT DATE: 2013
